FAERS Safety Report 5057379-X (Version None)
Quarter: 2006Q3

REPORT INFORMATION
  Report Type: 
  Country: None (occurrence: None)
  Receive Date: 20060721
  Receipt Date: 20050902
  Transmission Date: 20061208
  Serious: No
  Sender: FDA-Public Use
  Company Number: US-GLAXOSMITHKLINE-A0572882A

PATIENT
  Age: 76 Year
  Sex: Female

DRUGS (7)
  1. AVANDIA [Suspect]
     Dosage: 8MG PER DAY
     Route: 048
     Dates: end: 20050701
  2. PREVACID [Concomitant]
  3. LIPITOR [Concomitant]
  4. IMDUR [Concomitant]
  5. ECOTRIN [Concomitant]
  6. SYNTHROID [Concomitant]
  7. ZOLOFT [Concomitant]

REACTIONS (3)
  - BLOOD GLUCOSE INCREASED [None]
  - FALL [None]
  - VISION BLURRED [None]
